FAERS Safety Report 26011500 (Version 1)
Quarter: 2025Q4

REPORT INFORMATION
  Report Type: Spontaneous
  Country: US (occurrence: None)
  Receive Date: 20251107
  Receipt Date: 20251107
  Transmission Date: 20260117
  Serious: Yes (Hospitalization)
  Sender: FDA-CTU
  Company Number: None

PATIENT
  Sex: Female

DRUGS (1)
  1. KISQALI [Suspect]
     Active Substance: RIBOCICLIB SUCCINATE
     Indication: Breast cancer female
     Dosage: OTHER FREQUENCY : QDAY 21/28 DAYS;?
     Route: 048
     Dates: start: 20250226

REACTIONS (4)
  - Cardiac arrest [None]
  - Pleural effusion [None]
  - Pathological fracture [None]
  - Femur fracture [None]
